FAERS Safety Report 4486756-0 (Version None)
Quarter: 2004Q4

REPORT INFORMATION
  Report Type: 
  Country: None (occurrence: None)
  Receive Date: 20041027
  Receipt Date: 20041018
  Transmission Date: 20050328
  Serious: Yes (Hospitalization)
  Sender: FDA-Public Use
  Company Number: DE-MERCK-0410USA02559

PATIENT
  Age: 66 Year
  Sex: Female
  Weight: 50 kg

DRUGS (6)
  1. DECADRON [Suspect]
     Indication: BRAIN OEDEMA
     Route: 048
     Dates: start: 20040802, end: 20040908
  2. DECADRON [Suspect]
     Route: 048
     Dates: start: 20040909
  3. TEMODAL [Suspect]
     Indication: GLIOBLASTOMA MULTIFORME
     Route: 048
     Dates: start: 20040817, end: 20040904
  4. PHENYTOIN [Suspect]
     Indication: PROPHYLAXIS
     Route: 048
     Dates: start: 20040809, end: 20040909
  5. PIRETANIDE [Concomitant]
     Indication: OEDEMA
     Route: 048
  6. VASOTEC [Concomitant]
     Indication: HYPERTENSION
     Route: 048

REACTIONS (3)
  - ANOREXIA [None]
  - NAUSEA [None]
  - STEVENS-JOHNSON SYNDROME [None]
